FAERS Safety Report 12182250 (Version 2)
Quarter: 2016Q1

REPORT INFORMATION
  Report Type: Spontaneous
  Country: US (occurrence: US)
  Receive Date: 20160316
  Receipt Date: 20160330
  Transmission Date: 20160526
  Serious: No
  Sender: FDA-Public Use
  Company Number: US-ALEXION-A201601676

PATIENT
  Age: 25 Month
  Sex: Male

DRUGS (1)
  1. KANUMA [Suspect]
     Active Substance: SEBELIPASE ALFA
     Indication: PRODUCT USED FOR UNKNOWN INDICATION
     Dosage: 12 MG, Q2W
     Route: 042
     Dates: start: 20160208

REACTIONS (2)
  - Tachycardia [Recovered/Resolved]
  - Hypotension [Recovered/Resolved]

NARRATIVE: CASE EVENT DATE: 20160222
